FAERS Safety Report 7119451-X (Version None)
Quarter: 2010Q4

REPORT INFORMATION
  Report Type: 
  Country: None (occurrence: None)
  Receive Date: 20101123
  Receipt Date: 20101110
  Transmission Date: 20110411
  Serious: Yes (Death, Hospitalization)
  Sender: FDA-Public Use
  Company Number: JP-ACTELION-A-CH2010-41563

PATIENT
  Age: 54 Year
  Sex: Female
  Weight: 52 kg

DRUGS (4)
  1. TRACLEER [Suspect]
     Indication: PULMONARY ARTERIAL HYPERTENSION
     Dosage: 31.25 MG, UNK
     Route: 048
  2. TRACLEER [Suspect]
     Dosage: 93.75 MG, UNK
     Route: 048
  3. SILDENAFIL CITRATE [Concomitant]
  4. OXYGEN [Concomitant]

REACTIONS (7)
  - CONCOMITANT DISEASE AGGRAVATED [None]
  - DYSPNOEA [None]
  - INTERSTITIAL LUNG DISEASE [None]
  - PYREXIA [None]
  - RESPIRATORY FAILURE [None]
  - RESPIRATORY TRACT INFECTION [None]
  - RIGHT VENTRICULAR FAILURE [None]
